FAERS Safety Report 11094299 (Version 1)
Quarter: 2015Q2

REPORT INFORMATION
  Report Type: Spontaneous
  Country: US (occurrence: US)
  Receive Date: 20150506
  Receipt Date: 20150506
  Transmission Date: 20150821
  Serious: No
  Sender: FDA-Public Use
  Company Number: US-GLAXOSMITHKLINE-US2015036410

PATIENT
  Age: 47 Year
  Sex: Male
  Weight: 112 kg

DRUGS (1)
  1. EQUATE NICOTINE [Suspect]
     Active Substance: NICOTINE
     Indication: SMOKING CESSATION THERAPY
     Dosage: 21 MG, UNK
     Dates: start: 20150317, end: 20150317

REACTIONS (3)
  - Application site pruritus [Recovered/Resolved]
  - Rash [Recovered/Resolved]
  - Application site pain [Recovered/Resolved]
